FAERS Safety Report 4526654-7 (Version None)
Quarter: 2004Q4

REPORT INFORMATION
  Report Type: 
  Country: None (occurrence: None)
  Receive Date: 20041214
  Receipt Date: 20040722
  Transmission Date: 20050328
  Serious: Yes (Death)
  Sender: FDA-Public Use
  Company Number: JP-GLAXOSMITHKLINE-B0340350A

PATIENT
  Age: 59 Year
  Sex: Male

DRUGS (5)
  1. LAMIVUDINE [Suspect]
     Indication: HIV INFECTION
     Dosage: 300MG PER DAY
     Route: 048
     Dates: start: 19990224, end: 20031201
  2. STAVUDINE [Suspect]
     Indication: HIV INFECTION
     Dosage: 80MG PER DAY
     Route: 048
     Dates: start: 19990224, end: 20031201
  3. NELFINAVIR [Suspect]
     Indication: HIV INFECTION
     Dosage: 2500MG PER DAY
     Route: 048
     Dates: start: 19990224, end: 20031201
  4. RABEPRAZOLE SODIUM [Suspect]
     Route: 048
  5. BASEN [Concomitant]
     Indication: DIABETES MELLITUS INADEQUATE CONTROL
     Dosage: .2MG THREE TIMES PER DAY
     Route: 048
     Dates: start: 20030401, end: 20031201

REACTIONS (15)
  - ABDOMINAL PAIN [None]
  - ANXIETY [None]
  - ASPIRATION [None]
  - BILIARY TRACT DISORDER [None]
  - BLOOD PRESSURE DECREASED [None]
  - CHEST PAIN [None]
  - DUODENAL ULCER [None]
  - DYSPHAGIA [None]
  - HEPATIC NEOPLASM MALIGNANT [None]
  - HEPATITIS B [None]
  - HEPATOTOXICITY [None]
  - ILL-DEFINED DISORDER [None]
  - JAUNDICE CHOLESTATIC [None]
  - OXYGEN SATURATION DECREASED [None]
  - PANCREATITIS [None]
